FAERS Safety Report 10219242 (Version 2)
Quarter: 2014Q2

REPORT INFORMATION
  Report Type: Spontaneous
  Country: JP (occurrence: JP)
  Receive Date: 20140605
  Receipt Date: 20140605
  Transmission Date: 20141212
  Serious: Yes (Death)
  Sender: FDA-Public Use
  Company Number: JP-BAYER-2014-045390

PATIENT
  Age: 55 Year
  Sex: Male

DRUGS (2)
  1. STIVARGA [Suspect]
     Indication: COLON CANCER
     Dosage: 160 MG, QD
     Route: 048
     Dates: start: 20140312, end: 20140324
  2. STIVARGA [Suspect]
     Indication: COLON CANCER
     Dosage: 120 MG, QD
     Route: 048
     Dates: start: 20140407, end: 20140523

REACTIONS (4)
  - Colon cancer [Fatal]
  - Hepatic function abnormal [Recovered/Resolved]
  - Pruritus [Not Recovered/Not Resolved]
  - Xerosis [Not Recovered/Not Resolved]
